FAERS Safety Report 10296936 (Version 1)
Quarter: 2014Q3

REPORT INFORMATION
  Report Type: Spontaneous
  Country: US (occurrence: US)
  Receive Date: 20140711
  Receipt Date: 20140711
  Transmission Date: 20150326
  Serious: No
  Sender: FDA-Public Use
  Company Number: US-ASTRAZENECA-2014SE47823

PATIENT
  Sex: Female

DRUGS (1)
  1. ENTOCORT EC [Suspect]
     Active Substance: BUDESONIDE
     Indication: COLITIS
     Dosage: UNKNOWN UNK
     Route: 048

REACTIONS (3)
  - Headache [Unknown]
  - Hypertension [Unknown]
  - Cough [Unknown]
